FAERS Safety Report 9198131 (Version 3)
Quarter: 2013Q3

REPORT INFORMATION
  Report Type: Spontaneous
  Country: JP (occurrence: JP)
  Receive Date: 20130329
  Receipt Date: 20130708
  Transmission Date: 20140515
  Serious: Yes (Other)
  Sender: FDA-Public Use
  Company Number: JP-ELI_LILLY_AND_COMPANY-JP201302004341

PATIENT
  Age: 76 Year
  Sex: Male
  Weight: 50.9 kg

DRUGS (14)
  1. GEMZAR [Suspect]
     Indication: BLADDER CANCER
     Dosage: 1200 MG, UNK
     Route: 042
     Dates: start: 20130206, end: 20130206
  2. FLOMOX [Concomitant]
     Dosage: 100 MG, BID
     Route: 065
     Dates: start: 20130210
  3. HYPEN [Concomitant]
     Dosage: 200 MG, BID
     Route: 065
  4. UNIPHLY [Concomitant]
     Dosage: 200 MG, QD
     Route: 065
  5. SELBEX [Concomitant]
     Dosage: 50 MG, BID
     Route: 065
  6. DIOVAN [Concomitant]
     Dosage: 40 MG, BID
     Route: 065
  7. GASTER [Concomitant]
     Route: 065
  8. CALONAL [Concomitant]
  9. DEPAS [Concomitant]
  10. MUCOSTA [Concomitant]
  11. LAXOBERON [Concomitant]
  12. RHYTHMY [Concomitant]
  13. MAGMITT [Concomitant]
  14. METILON [Concomitant]
     Indication: PYREXIA
     Dosage: UNK
     Route: 065
     Dates: start: 20130210, end: 20130214

REACTIONS (3)
  - Blood creatine phosphokinase increased [Recovering/Resolving]
  - Pyrexia [Recovering/Resolving]
  - Myoglobinuria [Recovering/Resolving]
